FAERS Safety Report 6543607-8 (Version None)
Quarter: 2010Q1

REPORT INFORMATION
  Report Type: 
  Country: None (occurrence: None)
  Receive Date: 20100115
  Receipt Date: 20100106
  Transmission Date: 20100710
  Serious: Yes (Hospitalization, Other)
  Sender: FDA-Public Use
  Company Number: 2009SP016944

PATIENT
  Age: 50 Year
  Sex: Female
  Weight: 62.5964 kg

DRUGS (2)
  1. NUVARING [Suspect]
     Indication: VULVOVAGINAL DRYNESS
     Dosage: QM;VAG
     Route: 067
     Dates: start: 20061101, end: 20070101
  2. SPORANOX [Concomitant]

REACTIONS (39)
  - ALOPECIA [None]
  - ARTHRALGIA [None]
  - BACK PAIN [None]
  - BLOOD POTASSIUM DECREASED [None]
  - BLOOD SODIUM DECREASED [None]
  - CELLULITIS [None]
  - CEREBRAL INFARCTION [None]
  - CHEST PAIN [None]
  - CYSTITIS ESCHERICHIA [None]
  - DEEP VEIN THROMBOSIS [None]
  - DEHYDRATION [None]
  - DERMATITIS [None]
  - DIARRHOEA [None]
  - FATIGUE [None]
  - FUNGAL INFECTION [None]
  - HEADACHE [None]
  - HYPERSENSITIVITY [None]
  - HYPOAESTHESIA FACIAL [None]
  - HYPOAESTHESIA ORAL [None]
  - HYPOTENSION [None]
  - INFECTION [None]
  - JOINT SWELLING [None]
  - OTORRHOEA [None]
  - PAIN [None]
  - PHLEBITIS [None]
  - PLEURAL EFFUSION [None]
  - PNEUMONIA [None]
  - PULMONARY EMBOLISM [None]
  - PULMONARY FIBROSIS [None]
  - PULMONARY OEDEMA [None]
  - PYELONEPHRITIS [None]
  - SCOLIOSIS [None]
  - SPINAL COLUMN STENOSIS [None]
  - THYROID NEOPLASM [None]
  - URINARY TRACT INFECTION [None]
  - URINE ODOUR ABNORMAL [None]
  - VAGINAL HAEMORRHAGE [None]
  - VARICOSE VEIN [None]
  - WEIGHT INCREASED [None]
